FAERS Safety Report 19039264 (Version 6)
Quarter: 2024Q2

REPORT INFORMATION
  Report Type: Report from Study
  Country: DE (occurrence: DE)
  Receive Date: 20210322
  Receipt Date: 20240529
  Transmission Date: 20240716
  Serious: Yes (Hospitalization, Other)
  Sender: FDA-Public Use
  Company Number: DE-SHIRE-DE201924176

PATIENT
  Age: 9 Year
  Sex: Female

DRUGS (74)
  1. TEDUGLUTIDE [Suspect]
     Active Substance: TEDUGLUTIDE
     Indication: Short-bowel syndrome
     Dosage: 0.8 MILLIGRAM, QD
     Route: 042
     Dates: start: 20171001, end: 20200825
  2. TEDUGLUTIDE [Suspect]
     Active Substance: TEDUGLUTIDE
     Indication: Short-bowel syndrome
     Dosage: 0.8 MILLIGRAM, QD
     Route: 042
     Dates: start: 20171001, end: 20200825
  3. TEDUGLUTIDE [Suspect]
     Active Substance: TEDUGLUTIDE
     Indication: Short-bowel syndrome
     Dosage: 0.8 MILLIGRAM, QD
     Route: 042
     Dates: start: 20171001, end: 20200825
  4. TEDUGLUTIDE [Suspect]
     Active Substance: TEDUGLUTIDE
     Indication: Short-bowel syndrome
     Dosage: 0.8 MILLIGRAM, QD
     Route: 042
     Dates: start: 20171001, end: 20200825
  5. TEDUGLUTIDE [Suspect]
     Active Substance: TEDUGLUTIDE
     Dosage: 0.9 MILLIGRAM, 1/WEEK
     Route: 042
     Dates: start: 20200826, end: 20210317
  6. TEDUGLUTIDE [Suspect]
     Active Substance: TEDUGLUTIDE
     Dosage: 0.9 MILLIGRAM, 1/WEEK
     Route: 042
     Dates: start: 20200826, end: 20210317
  7. TEDUGLUTIDE [Suspect]
     Active Substance: TEDUGLUTIDE
     Dosage: 0.9 MILLIGRAM, 1/WEEK
     Route: 042
     Dates: start: 20200826, end: 20210317
  8. TEDUGLUTIDE [Suspect]
     Active Substance: TEDUGLUTIDE
     Dosage: 0.9 MILLIGRAM, 1/WEEK
     Route: 042
     Dates: start: 20200826, end: 20210317
  9. TEDUGLUTIDE [Suspect]
     Active Substance: TEDUGLUTIDE
     Dosage: 0.9 MILLIGRAM, QD
     Route: 042
     Dates: start: 20210318, end: 20210528
  10. TEDUGLUTIDE [Suspect]
     Active Substance: TEDUGLUTIDE
     Dosage: 0.9 MILLIGRAM, QD
     Route: 042
     Dates: start: 20210318, end: 20210528
  11. TEDUGLUTIDE [Suspect]
     Active Substance: TEDUGLUTIDE
     Dosage: 0.9 MILLIGRAM, QD
     Route: 042
     Dates: start: 20210318, end: 20210528
  12. TEDUGLUTIDE [Suspect]
     Active Substance: TEDUGLUTIDE
     Dosage: 0.9 MILLIGRAM, QD
     Route: 042
     Dates: start: 20210318, end: 20210528
  13. TEDUGLUTIDE [Suspect]
     Active Substance: TEDUGLUTIDE
     Dosage: 1.1 MILLIGRAM, QD
     Route: 042
     Dates: start: 20230227
  14. TEDUGLUTIDE [Suspect]
     Active Substance: TEDUGLUTIDE
     Dosage: 1.1 MILLIGRAM, QD
     Route: 042
     Dates: start: 20230227
  15. TEDUGLUTIDE [Suspect]
     Active Substance: TEDUGLUTIDE
     Dosage: 1.1 MILLIGRAM, QD
     Route: 042
     Dates: start: 20230227
  16. TEDUGLUTIDE [Suspect]
     Active Substance: TEDUGLUTIDE
     Dosage: 1.1 MILLIGRAM, QD
     Route: 042
     Dates: start: 20230227
  17. FERROUS SUCCINATE [Concomitant]
     Active Substance: FERROUS SUCCINATE
     Indication: Iron deficiency anaemia
     Dosage: 10 MILLIGRAM, BID
     Route: 042
     Dates: start: 20190323, end: 20190801
  18. FERROUS SUCCINATE [Concomitant]
     Active Substance: FERROUS SUCCINATE
     Dosage: 10 MILLIGRAM, 1/WEEK
     Route: 042
     Dates: start: 20190802, end: 20200521
  19. FERROUS SUCCINATE [Concomitant]
     Active Substance: FERROUS SUCCINATE
     Dosage: 10 MILLIGRAM, 1/WEEK
     Route: 042
     Dates: start: 20200825, end: 20210303
  20. FERROUS SUCCINATE [Concomitant]
     Active Substance: FERROUS SUCCINATE
     Dosage: UNK UNK, 1/WEEK
     Route: 042
     Dates: start: 20210304
  21. FERROUS SUCCINATE [Concomitant]
     Active Substance: FERROUS SUCCINATE
     Dosage: 37.5 UNK, 1/WEEK
     Route: 042
     Dates: start: 20210723
  22. FUROSEMIDE [Concomitant]
     Active Substance: FUROSEMIDE
     Indication: Disease complication
     Dosage: 280 MILLIGRAM
     Route: 042
     Dates: start: 20190323, end: 20190401
  23. FUROSEMIDE [Concomitant]
     Active Substance: FUROSEMIDE
     Indication: Dehydration
     Dosage: 280 MILLIGRAM
     Route: 042
     Dates: start: 20190828, end: 20191006
  24. FUROSEMIDE [Concomitant]
     Active Substance: FUROSEMIDE
     Indication: Oedema
     Dosage: 15 MILLIGRAM, QID
     Route: 048
     Dates: start: 20191123, end: 20191208
  25. FUROSEMIDE [Concomitant]
     Active Substance: FUROSEMIDE
     Dosage: 20 MILLIGRAM, QID
     Route: 048
     Dates: start: 20191209, end: 20200118
  26. FUROSEMIDE [Concomitant]
     Active Substance: FUROSEMIDE
     Dosage: 280 MILLIGRAM
     Route: 050
     Dates: start: 20200119, end: 20201030
  27. FUROSEMIDE [Concomitant]
     Active Substance: FUROSEMIDE
     Dosage: 300 MILLIGRAM
     Route: 050
     Dates: start: 20201031, end: 20210303
  28. FUROSEMIDE [Concomitant]
     Active Substance: FUROSEMIDE
     Dosage: 10 MILLIGRAM, BID
     Route: 048
     Dates: start: 20201024, end: 20210303
  29. FUROSEMIDE [Concomitant]
     Active Substance: FUROSEMIDE
     Dosage: 68.6 MILLIGRAM, QD
     Route: 042
     Dates: start: 20211215
  30. FUROSEMIDE [Concomitant]
     Active Substance: FUROSEMIDE
     Dosage: 15 MILLIGRAM, TID
     Route: 048
     Dates: start: 20210304
  31. HEPARIN [Concomitant]
     Active Substance: HEPARIN SODIUM
     Indication: Anticoagulant therapy
     Dosage: 35000 INTERNATIONAL UNIT
     Route: 042
     Dates: start: 20190323, end: 20200118
  32. HEPARIN [Concomitant]
     Active Substance: HEPARIN SODIUM
     Dosage: 30000 INTERNATIONAL UNIT
     Route: 042
     Dates: start: 20200119, end: 20201030
  33. HEPARIN [Concomitant]
     Active Substance: HEPARIN SODIUM
     Dosage: 35000 INTERNATIONAL UNIT
     Route: 042
     Dates: start: 20201031, end: 20210303
  34. ERYTHROPOETIN [EPOETIN ALFA] [Concomitant]
     Indication: Anaemia
     Dosage: 300 INTERNATIONAL UNIT, 1/WEEK
     Route: 042
     Dates: start: 20190323, end: 20210304
  35. NEFROCARNIT [Concomitant]
     Indication: Product used for unknown indication
     Dosage: UNK
     Route: 065
  36. CALCITRIOL [Concomitant]
     Active Substance: CALCITRIOL
     Indication: Vitamin D
     Dosage: 1 INTERNATIONAL UNIT
     Route: 042
     Dates: start: 20190323, end: 20190801
  37. CALCITRIOL [Concomitant]
     Active Substance: CALCITRIOL
     Indication: Renal disorder
     Dosage: 1 INTERNATIONAL UNIT, 1/WEEK
     Route: 042
     Dates: start: 20190802
  38. CALCITRIOL [Concomitant]
     Active Substance: CALCITRIOL
     Dosage: 1 INTERNATIONAL UNIT, 1/WEEK
     Route: 042
     Dates: start: 20210723
  39. ERYTHROPOIETIN [Concomitant]
     Active Substance: ERYTHROPOIETIN
     Indication: Product used for unknown indication
     Dosage: UNK
     Route: 065
  40. VITADRAL [Concomitant]
     Indication: Vitamin A deficiency
     Dosage: 4 GTT DROPS, QD
     Route: 048
     Dates: start: 20150522, end: 20191005
  41. VITADRAL [Concomitant]
     Dosage: 6 GTT DROPS, QD
     Route: 048
     Dates: start: 20191209, end: 20200727
  42. VITADRAL [Concomitant]
     Dosage: 15 GTT DROPS, QD
     Route: 047
     Dates: start: 20200728
  43. AMPHO-MORONAL [Concomitant]
     Active Substance: AMPHOTERICIN B
     Indication: Antifungal treatment
     Dosage: 1 MILLILITER, QID
     Route: 048
     Dates: start: 20161120, end: 20191123
  44. AMPHO-MORONAL [Concomitant]
     Active Substance: AMPHOTERICIN B
     Dosage: 2 MILLILITER, QID
     Route: 048
     Dates: start: 20191209
  45. ZINC OROTATE [Concomitant]
     Active Substance: ZINC OROTATE
     Indication: Supplementation therapy
     Dosage: 12.50 MILLIGRAM, QD
     Route: 048
     Dates: start: 20190208, end: 20191208
  46. ZINC OROTATE [Concomitant]
     Active Substance: ZINC OROTATE
     Dosage: 12.50 MILLIGRAM, QD
     Route: 048
     Dates: start: 20191209, end: 20200727
  47. ZINC OROTATE [Concomitant]
     Active Substance: ZINC OROTATE
     Dosage: 12.50 MILLIGRAM, QD
     Route: 048
     Dates: start: 20200728
  48. SODIUM CHLORIDE [Concomitant]
     Active Substance: SODIUM CHLORIDE
     Indication: Product used for unknown indication
     Dosage: UNK
     Route: 065
  49. FLUCLOXACILLIN [Concomitant]
     Active Substance: FLUCLOXACILLIN
     Indication: Sepsis
     Dosage: UNK
     Route: 042
     Dates: start: 20200525, end: 20200606
  50. OCTENISAN [ALLANTOIN;OCTENIDINE HYDROCHLORIDE] [Concomitant]
     Indication: Wound treatment
     Dosage: 1 INTERNATIONAL UNIT, QD
     Route: 061
     Dates: start: 20200104, end: 20200520
  51. PRONTOSAN [POLIHEXANIDE] [Concomitant]
     Indication: Wound treatment
     Dosage: 1 DOSAGE FORM, QD
     Route: 061
     Dates: start: 20200104, end: 20200520
  52. CREON [Concomitant]
     Active Substance: PANCRELIPASE AMYLASE\PANCRELIPASE LIPASE\PANCRELIPASE PROTEASE
     Indication: Pancreatic failure
     Dosage: 5000 IE, TID
     Route: 048
     Dates: start: 20200728, end: 20201002
  53. CREON [Concomitant]
     Active Substance: PANCRELIPASE AMYLASE\PANCRELIPASE LIPASE\PANCRELIPASE PROTEASE
     Indication: Dyspepsia
     Dosage: 5000 IE, TID
     Route: 048
     Dates: start: 20210919
  54. CREON [Concomitant]
     Active Substance: PANCRELIPASE AMYLASE\PANCRELIPASE LIPASE\PANCRELIPASE PROTEASE
     Dosage: 5000 IE, TID
     Route: 048
     Dates: start: 20201003
  55. CREON [Concomitant]
     Active Substance: PANCRELIPASE AMYLASE\PANCRELIPASE LIPASE\PANCRELIPASE PROTEASE
     Dosage: 5000 IE, TID
     Route: 048
     Dates: start: 20210919
  56. OMNITROPE [Concomitant]
     Active Substance: SOMATROPIN
     Indication: Failure to thrive
     Dosage: 0.45 MILLIGRAM, QD
     Route: 058
     Dates: start: 20200728
  57. PANTOPRAZOLE [Concomitant]
     Active Substance: PANTOPRAZOLE
     Indication: Gastric ulcer
     Dosage: 10 MILLIGRAM
     Route: 065
     Dates: start: 20210919
  58. Kalinor [Concomitant]
     Indication: Hypokalaemia
     Dosage: 1 DOSAGE FORM, QD
     Route: 048
     Dates: start: 20210919
  59. ERYTHROPOIETIN [Concomitant]
     Active Substance: ERYTHROPOIETIN
     Indication: Anaemia
     Dosage: 500 IE, 1/WEEK
     Route: 058
     Dates: start: 20210828
  60. LEVOCARNITIN [Concomitant]
     Indication: Carnitine
     Dosage: 50 MILLIGRAM
     Route: 042
     Dates: start: 20190323, end: 20190801
  61. LEVOCARNITIN [Concomitant]
     Dosage: 50 MILLIGRAM, 1/WEEK
     Route: 042
     Dates: start: 20190802
  62. XYLOMETAZOLINE HYDROCHLORIDE [Concomitant]
     Active Substance: XYLOMETAZOLINE HYDROCHLORIDE
     Indication: Nasal decongestion therapy
     Dosage: 1 DOSAGE FORM
     Route: 055
     Dates: start: 20161120, end: 20190527
  63. LENOGRASTIM [Concomitant]
     Active Substance: LENOGRASTIM
     Indication: Neutropenia
     Dosage: 1 INTERNATIONAL UNIT
     Route: 042
     Dates: start: 20210304
  64. BLEMAREN [Concomitant]
     Indication: Renal failure
     Dosage: 1 DOSAGE FORM, BID
     Route: 048
     Dates: start: 20210304
  65. MEROPENEM [Concomitant]
     Active Substance: MEROPENEM
     Indication: Pyrexia
     Dosage: UNK
     Route: 042
     Dates: start: 20210614, end: 20210616
  66. GENTAMICIN [Concomitant]
     Active Substance: GENTAMICIN
     Indication: Pyrexia
     Dosage: UNK
     Route: 042
     Dates: start: 20210615, end: 20210616
  67. AMPHOTERICIN B [Concomitant]
     Active Substance: AMPHOTERICIN B
     Indication: Pyrexia
     Dosage: UNK
     Route: 042
     Dates: start: 20210615, end: 20210616
  68. FLUCYTOSINE [Concomitant]
     Active Substance: FLUCYTOSINE
     Indication: Candida infection
     Dosage: UNK
     Route: 042
     Dates: start: 20210615, end: 20210617
  69. GRANULOCYTE COLONY-STIMULATING FACTOR NOS [Concomitant]
     Active Substance: GRANULOCYTE COLONY-STIMULATING FACTOR NOS
     Indication: Neutropenia
     Dosage: 5 DOSAGE FORM, QD
     Route: 058
     Dates: start: 20210616
  70. NEFROCARNIT [Concomitant]
     Indication: Carnitine deficiency
     Dosage: 50 MILLIGRAM, 1/WEEK
     Route: 042
     Dates: start: 20210723
  71. COTRIM [Concomitant]
     Active Substance: SULFAMETHOXAZOLE\TRIMETHOPRIM
     Indication: Pneumocystis jirovecii pneumonia
     Dosage: 720 MILLIGRAM, 1/WEEK
     Route: 042
     Dates: start: 20210723
  72. VITAMINS [Concomitant]
     Active Substance: VITAMINS
     Indication: Hypovitaminosis
     Dosage: 6 MILLILITER, QD
     Route: 042
     Dates: start: 20211215
  73. ERGOCALCIFEROL\PHYTONADIONE\RETINOL\TOCOPHEROL [Concomitant]
     Active Substance: ERGOCALCIFEROL\PHYTONADIONE\RETINOL\TOCOPHEROL
     Indication: Hypovitaminosis
     Dosage: 6 MILLILITER, QD
     Route: 042
     Dates: start: 20211215
  74. ENOXAPARIN SODIUM [Concomitant]
     Active Substance: ENOXAPARIN SODIUM
     Indication: Anticoagulant therapy
     Dosage: 80 MILLIGRAM, QD
     Route: 042
     Dates: start: 20211215

REACTIONS (2)
  - Systemic infection [Recovered/Resolved]
  - Neutropenia [Recovered/Resolved]

NARRATIVE: CASE EVENT DATE: 20190701
